FAERS Safety Report 6272480-0 (Version None)
Quarter: 2009Q3

REPORT INFORMATION
  Report Type: 
  Country: None (occurrence: None)
  Receive Date: 20090717
  Receipt Date: 20070118
  Transmission Date: 20100115
  Serious: Yes (Hospitalization, Other)
  Sender: FDA-Public Use
  Company Number: GB-AVENTIS-200916879GDDC

PATIENT
  Age: 72 Year
  Sex: Male

DRUGS (9)
  1. GLYBURIDE [Suspect]
  2. METFORMIN HCL [Suspect]
  3. DIGOXIN [Suspect]
  4. FUROSEMIDE [Concomitant]
  5. ISOSORBIDE DINITRATE [Concomitant]
  6. CAPTOPRIL [Concomitant]
  7. ALBUTEROL [Concomitant]
  8. PREDNISONE [Concomitant]
  9. IPRATROPIUM BROMIDE [Concomitant]

REACTIONS (3)
  - BLOOD GLUCOSE INCREASED [None]
  - LACTIC ACIDOSIS [None]
  - THERAPEUTIC AGENT TOXICITY [None]
